FAERS Safety Report 11305705 (Version 1)
Quarter: 2015Q3

REPORT INFORMATION
  Report Type: Spontaneous
  Country: US (occurrence: US)
  Receive Date: 20150723
  Receipt Date: 20150723
  Transmission Date: 20151125
  Serious: No
  Sender: FDA-Public Use
  Company Number: US-JNJFOC-20141215885

PATIENT
  Age: 80 Year
  Sex: Female
  Weight: 75.75 kg

DRUGS (8)
  1. ZYRTEC 10MG IR TABLET [Suspect]
     Active Substance: CETIRIZINE HYDROCHLORIDE
     Indication: RHINORRHOEA
     Route: 048
     Dates: start: 20141215, end: 20141217
  2. SYNTHROID [Concomitant]
     Active Substance: LEVOTHYROXINE SODIUM
     Indication: HYPOTHYROIDISM
     Dosage: 175 MCG??INTERVAL: 2 MONTHS
     Route: 065
  3. AMOXICILLIN. [Concomitant]
     Active Substance: AMOXICILLIN
     Indication: SINUSITIS
     Dosage: INTERVAL :3 DAYS
     Route: 065
     Dates: start: 20141215
  4. CALCIUM WITH VITAMIN D [Concomitant]
     Active Substance: CALCIUM\VITAMIN D
     Indication: ROUTINE HEALTH MAINTENANCE
     Dosage: INTERVAL : 4 YEARS??1 PER DAY
     Route: 065
  5. ZYRTEC 10MG IR TABLET [Suspect]
     Active Substance: CETIRIZINE HYDROCHLORIDE
     Route: 048
  6. GLYBURIDE/METFORMIN [Concomitant]
     Active Substance: GLYBURIDE\METFORMIN
     Indication: DIABETES MELLITUS
     Dosage: 2.5 MG/500 MG??INTERVAL :17-18 YEARS
     Route: 065
  7. JANUVIA [Concomitant]
     Active Substance: SITAGLIPTIN PHOSPHATE
     Indication: DIABETES MELLITUS
     Dosage: INTERVAL: 3 1/2 YEARS
     Route: 065
  8. MULTIVITAMINS, [Concomitant]
     Indication: ROUTINE HEALTH MAINTENANCE
     Dosage: INTERVAL: 4 YEARS
     Route: 065

REACTIONS (4)
  - Throat irritation [Not Recovered/Not Resolved]
  - Blood glucose increased [Recovered/Resolved]
  - Cough [Recovered/Resolved]
  - Oropharyngeal pain [Recovered/Resolved]

NARRATIVE: CASE EVENT DATE: 20141215
